FAERS Safety Report 18205879 (Version 1)
Quarter: 2020Q3

REPORT INFORMATION
  Report Type: Spontaneous
  Country: US (occurrence: US)
  Receive Date: 20200827
  Receipt Date: 20200827
  Transmission Date: 20201103
  Serious: Yes (Hospitalization, Other)
  Sender: FDA-Public Use
  Company Number: US-PURDUE-USA-2020-0163505

PATIENT
  Sex: Female

DRUGS (4)
  1. TRAMADOL. [Suspect]
     Active Substance: TRAMADOL
     Indication: PRODUCT USED FOR UNKNOWN INDICATION
     Dosage: UNK
     Route: 048
  2. OXYCODONE HCL TABLETS (RHODES 91?490) [Suspect]
     Active Substance: OXYCODONE HYDROCHLORIDE
     Indication: PRODUCT USED FOR UNKNOWN INDICATION
     Dosage: UNK
     Route: 048
  3. OXYCONTIN [Suspect]
     Active Substance: OXYCODONE HYDROCHLORIDE
     Indication: PRODUCT USED FOR UNKNOWN INDICATION
     Dosage: 20 MG, UNK
     Route: 048
  4. HYDROCODONE BITARTRATE AND ACETAMINOPHEN [Suspect]
     Active Substance: ACETAMINOPHEN\HYDROCODONE BITARTRATE
     Indication: PRODUCT USED FOR UNKNOWN INDICATION
     Dosage: UNK
     Route: 048

REACTIONS (17)
  - Pain [Unknown]
  - Unevaluable event [Unknown]
  - Gastritis [Unknown]
  - Hospitalisation [Unknown]
  - Urinary tract infection [Unknown]
  - Abnormal behaviour [Unknown]
  - Abdominal pain [Unknown]
  - Personality change [Unknown]
  - Stent placement [Unknown]
  - Drug dependence [Unknown]
  - Urinary tract obstruction [Unknown]
  - Renal failure [Unknown]
  - Cholecystitis [Unknown]
  - Cholelithiasis [Unknown]
  - Migraine [Unknown]
  - Illness [Unknown]
  - Nephrolithiasis [Unknown]
